FAERS Safety Report 24266411 (Version 6)
Quarter: 2025Q4

REPORT INFORMATION
  Report Type: Report from Study
  Country: GB (occurrence: GB)
  Receive Date: 20240830
  Receipt Date: 20251017
  Transmission Date: 20260117
  Serious: Yes (Hospitalization, Other)
  Sender: AMGEN
  Company Number: GB-Vifor (International) Inc.-VIT-2024-05672

PATIENT
  Age: 46 Year
  Sex: Female
  Weight: 70.75 kg

DRUGS (18)
  1. AVACOPAN [Suspect]
     Active Substance: AVACOPAN
     Indication: Anti-neutrophil cytoplasmic antibody positive vasculitis
     Dosage: 30,MG,BID
     Route: 048
     Dates: start: 20231212, end: 20240625
  2. CYCLOPHOSPHAMIDE [Concomitant]
     Active Substance: CYCLOPHOSPHAMIDE
     Indication: Anti-neutrophil cytoplasmic antibody positive vasculitis
     Dosage: SINGLE IV INFUSION, SINGLE INFUSION OF COURSE PRIOR TO DOSE CHANGE
     Route: 040
     Dates: start: 20231221, end: 20231221
  3. CYCLOPHOSPHAMIDE [Concomitant]
     Active Substance: CYCLOPHOSPHAMIDE
     Dosage: SINGLE INFUSION GIVEN ON 04-JAN-2024, 25-JAN-2024, 05-MAR-2024 AND 10-APR-2024
     Route: 040
     Dates: start: 20240104, end: 20240410
  4. CYCLOPHOSPHAMIDE [Concomitant]
     Active Substance: CYCLOPHOSPHAMIDE
     Dosage: DOSE REDUCED DUE TO NEUTROPENIA, SINGLE IV INFUSION
     Route: 040
     Dates: start: 20240509, end: 20240509
  5. CYCLOPHOSPHAMIDE [Concomitant]
     Active Substance: CYCLOPHOSPHAMIDE
     Dosage: THIS DOSE WAS REDUCED DUE BORDERLINE LOW WHITE CELL COUNT, SINGLE IV INFUSION
     Route: 040
     Dates: start: 20240530, end: 20240530
  6. CYCLOPHOSPHAMIDE [Concomitant]
     Active Substance: CYCLOPHOSPHAMIDE
     Dosage: THIS DOSE WAS REDUCED DUE BORDERLINE LOW WHITE CELL COUNT, SINGLE IV INFUSION
     Route: 040
     Dates: start: 20240627, end: 20240627
  7. CYCLOPHOSPHAMIDE [Concomitant]
     Active Substance: CYCLOPHOSPHAMIDE
     Dosage: THIS DOSE WAS REDUCED DUE BORDERLINE LOW WHITE CELL COUNT, SINGLE IV INFUSION
     Route: 040
     Dates: start: 20240718, end: 20240718
  8. PREDNISOLONE [Concomitant]
     Active Substance: PREDNISOLONE
     Indication: Anti-neutrophil cytoplasmic antibody positive vasculitis
     Dosage: 40,MG,QD
     Route: 048
     Dates: start: 20231121, end: 20231122
  9. PREDNISOLONE [Concomitant]
     Active Substance: PREDNISOLONE
     Dosage: 60,MG,QD
     Route: 048
     Dates: start: 20231123, end: 20231206
  10. PREDNISOLONE [Concomitant]
     Active Substance: PREDNISOLONE
     Dosage: 45,MG,QD
     Route: 048
     Dates: start: 20231207, end: 20231213
  11. PREDNISOLONE [Concomitant]
     Active Substance: PREDNISOLONE
     Dosage: 30,MG,QD
     Route: 048
     Dates: start: 20231214, end: 20231220
  12. PREDNISOLONE [Concomitant]
     Active Substance: PREDNISOLONE
     Dosage: 25,MG,QD
     Route: 048
     Dates: start: 20231221, end: 20231227
  13. PREDNISOLONE [Concomitant]
     Active Substance: PREDNISOLONE
     Dosage: 20,MG,QD
     Route: 048
     Dates: start: 20231228, end: 20240103
  14. PREDNISOLONE [Concomitant]
     Active Substance: PREDNISOLONE
     Dosage: 15,MG,QD
     Route: 048
     Dates: start: 20240104, end: 20240110
  15. PREDNISOLONE [Concomitant]
     Active Substance: PREDNISOLONE
     Dosage: 10,MG,QD
     Route: 048
     Dates: start: 20240111, end: 20240117
  16. PREDNISOLONE [Concomitant]
     Active Substance: PREDNISOLONE
     Dosage: 5,MG,QD
     Route: 048
     Dates: start: 20240118, end: 20240124
  17. AZATHIOPRINE [Concomitant]
     Active Substance: AZATHIOPRINE
     Indication: Anti-neutrophil cytoplasmic antibody positive vasculitis
     Dosage: 50,MG,QD
     Route: 048
     Dates: start: 20240807, end: 20240814
  18. AZATHIOPRINE [Concomitant]
     Active Substance: AZATHIOPRINE
     Dosage: 100,MG,QD
     Route: 048
     Dates: start: 20240815

REACTIONS (9)
  - Neutropenia [Recovered/Resolved]
  - Vasculitis [Recovered/Resolved]
  - Lower respiratory tract infection [Recovered/Resolved]
  - Lower respiratory tract infection [Recovered/Resolved]
  - Upper respiratory tract infection [Recovered/Resolved]
  - Pyrexia [Recovered/Resolved]
  - Vomiting [Recovered/Resolved]
  - Nausea [Recovered/Resolved]
  - Wheezing [Recovered/Resolved]

NARRATIVE: CASE EVENT DATE: 20240111
